FAERS Safety Report 24388955 (Version 4)
Quarter: 2024Q4

REPORT INFORMATION
  Report Type: Spontaneous
  Country: JP (occurrence: JP)
  Receive Date: 20241002
  Receipt Date: 20241223
  Transmission Date: 20250115
  Serious: Yes (Death, Hospitalization, Disabling, Other)
  Sender: ALEXION PHARMACEUTICALS
  Company Number: JP-ASTRAZENECA-240104818_013120_P_1

PATIENT
  Age: 53 Year
  Weight: 74 kg

DRUGS (28)
  1. DURVALUMAB [Suspect]
     Active Substance: DURVALUMAB
     Indication: Non-small cell lung cancer
     Dosage: UNK
  2. DURVALUMAB [Suspect]
     Active Substance: DURVALUMAB
     Dosage: UNK
     Route: 042
  3. DURVALUMAB [Suspect]
     Active Substance: DURVALUMAB
     Dosage: UNK
  4. DURVALUMAB [Suspect]
     Active Substance: DURVALUMAB
     Dosage: UNK
     Route: 042
  5. DURVALUMAB [Suspect]
     Active Substance: DURVALUMAB
     Dosage: 1500 MILLIGRAM, Q3W
  6. DURVALUMAB [Suspect]
     Active Substance: DURVALUMAB
     Dosage: 1500 MILLIGRAM, Q3W
     Route: 041
  7. DURVALUMAB [Suspect]
     Active Substance: DURVALUMAB
     Dosage: 1500 MILLIGRAM, Q3W
  8. DURVALUMAB [Suspect]
     Active Substance: DURVALUMAB
     Dosage: 1500 MILLIGRAM, Q3W
     Route: 041
  9. DURVALUMAB [Suspect]
     Active Substance: DURVALUMAB
     Dosage: 1500 MILLIGRAM, Q4W
  10. DURVALUMAB [Suspect]
     Active Substance: DURVALUMAB
     Dosage: 1500 MILLIGRAM, Q4W
     Route: 041
  11. DURVALUMAB [Suspect]
     Active Substance: DURVALUMAB
     Dosage: 1500 MILLIGRAM, Q4W
  12. DURVALUMAB [Suspect]
     Active Substance: DURVALUMAB
     Dosage: 1500 MILLIGRAM, Q4W
     Route: 041
  13. TREMELIMUMAB [Suspect]
     Active Substance: TREMELIMUMAB
     Indication: Non-small cell lung cancer
     Dosage: UNK
  14. TREMELIMUMAB [Suspect]
     Active Substance: TREMELIMUMAB
     Dosage: UNK
  15. TREMELIMUMAB [Suspect]
     Active Substance: TREMELIMUMAB
     Dosage: UNK
  16. TREMELIMUMAB [Suspect]
     Active Substance: TREMELIMUMAB
     Dosage: UNK
  17. TREMELIMUMAB [Suspect]
     Active Substance: TREMELIMUMAB
     Dosage: 75 MILLIGRAM, Q3W
  18. TREMELIMUMAB [Suspect]
     Active Substance: TREMELIMUMAB
     Dosage: 75 MILLIGRAM, Q3W
     Route: 041
  19. TREMELIMUMAB [Suspect]
     Active Substance: TREMELIMUMAB
     Dosage: 75 MILLIGRAM, Q3W
  20. TREMELIMUMAB [Suspect]
     Active Substance: TREMELIMUMAB
     Dosage: 75 MILLIGRAM, Q3W
     Route: 041
  21. MEROPENEM [Suspect]
     Active Substance: MEROPENEM
     Dosage: DOSE UNKNOWN
     Route: 065
  22. MEROPENEM [Suspect]
     Active Substance: MEROPENEM
     Dosage: DOSE UNKNOWN
     Route: 065
  23. CARBOPLATIN [Concomitant]
     Active Substance: CARBOPLATIN
     Indication: Non-small cell lung cancer
     Dosage: DOSE UNKNOWN
     Route: 065
  24. CARBOPLATIN [Concomitant]
     Active Substance: CARBOPLATIN
     Dosage: DOSE UNKNOWN
     Route: 065
  25. CARBOPLATIN [Concomitant]
     Active Substance: CARBOPLATIN
     Dosage: DOSE UNKNOWN
     Route: 065
  26. CARBOPLATIN [Concomitant]
     Active Substance: CARBOPLATIN
     Dosage: DOSE UNKNOWN
     Route: 065
  27. ALIMTA [Concomitant]
     Active Substance: PEMETREXED DISODIUM
     Indication: Non-small cell lung cancer
     Dosage: DOSE UNKNOWN
     Route: 065
  28. ALIMTA [Concomitant]
     Active Substance: PEMETREXED DISODIUM
     Dosage: DOSE UNKNOWN
     Route: 065

REACTIONS (7)
  - Interstitial lung disease [Fatal]
  - Liver disorder [Not Recovered/Not Resolved]
  - Cytokine release syndrome [Recovering/Resolving]
  - Pancytopenia [Recovering/Resolving]
  - Pyrexia [Recovering/Resolving]
  - Inflammation [Recovering/Resolving]
  - Drug eruption [Unknown]
